FAERS Safety Report 10469768 (Version 1)
Quarter: 2014Q3

REPORT INFORMATION
  Report Type: Spontaneous
  Country: US (occurrence: None)
  Receive Date: 20140904
  Receipt Date: 20140904
  Transmission Date: 20150326
  Serious: No
  Sender: FDA-Public Use
  Company Number: 228758

PATIENT
  Age: 67 Year
  Sex: Female

DRUGS (5)
  1. PICATO [Suspect]
     Active Substance: INGENOL MEBUTATE
     Indication: ACTINIC KERATOSIS
     Dosage: 1 IN 1 D, DERMAL
     Route: 061
     Dates: start: 20140701, end: 20140703
  2. FOLIC ACID. [Concomitant]
     Active Substance: FOLIC ACID
  3. LOVASTATIN. [Concomitant]
     Active Substance: LOVASTATIN
  4. ARIMIDEX [Concomitant]
     Active Substance: ANASTROZOLE
  5. BENICAR [Concomitant]
     Active Substance: OLMESARTAN MEDOXOMIL

REACTIONS (2)
  - Application site vesicles [None]
  - Eyelid oedema [None]

NARRATIVE: CASE EVENT DATE: 20140706
